FAERS Safety Report 6727168-6 (Version None)
Quarter: 2010Q2

REPORT INFORMATION
  Report Type: 
  Country: None (occurrence: None)
  Receive Date: 20100512
  Receipt Date: 20100212
  Transmission Date: 20101027
  Serious: No
  Sender: FDA-Public Use
  Company Number: 1000011823

PATIENT
  Age: 45 Year
  Sex: Female

DRUGS (3)
  1. SAVELLA [Suspect]
     Indication: PAIN
     Dosage: 12.5 MG (12.5 MG,1 IN 1 D),ORAL; 25 MG (12.5 MG,2 IN 1 D),ORAL
     Route: 048
     Dates: start: 20100101, end: 20100201
  2. SAVELLA [Suspect]
     Indication: PAIN
     Dosage: 12.5 MG (12.5 MG,1 IN 1 D),ORAL; 25 MG (12.5 MG,2 IN 1 D),ORAL
     Route: 048
     Dates: start: 20100201, end: 20100201
  3. SAVELLA [Suspect]
     Dosage: 50 MG (25 MG,2 IN 1 D),ORAL
     Route: 048
     Dates: start: 20100201, end: 20100201

REACTIONS (1)
  - NIGHTMARE [None]
